FAERS Safety Report 7425682-1 (Version None)
Quarter: 2011Q2

REPORT INFORMATION
  Report Type: 
  Country: None (occurrence: None)
  Receive Date: 20110420
  Receipt Date: 20110411
  Transmission Date: 20111010
  Serious: Yes (Other)
  Sender: FDA-Public Use
  Company Number: DE-BAYER-2011-031261

PATIENT
  Age: 52 Year
  Sex: Female

DRUGS (7)
  1. LISINOPRIL [Concomitant]
     Dosage: 20 MG, QD
     Dates: start: 20110329
  2. FENTANYL [Concomitant]
     Dosage: UNK
     Dates: start: 20110201
  3. LISINOPRIL [Concomitant]
     Dosage: 12.5 MG, QD
     Dates: start: 20110201, end: 20110329
  4. ARCOXIA [Concomitant]
     Dosage: 90 MG, QD
     Dates: start: 20110201, end: 20110329
  5. FLUPIRTINE [Concomitant]
     Dosage: 200 MG, QD
     Dates: start: 20100101, end: 20110329
  6. PANTOZOL [Concomitant]
     Dosage: 40 MG, QD
     Dates: start: 20100101
  7. SORAFENIB (RAF KINASE INHIBITOR) [Suspect]
     Indication: METASTATIC RENAL CELL CARCINOMA
     Dosage: UNK
     Dates: start: 20110315, end: 20110329

REACTIONS (2)
  - SYSTOLIC HYPERTENSION [None]
  - HYPOKALAEMIA [None]
